FAERS Safety Report 6047814-2 (Version None)
Quarter: 2009Q1

REPORT INFORMATION
  Report Type: 
  Country: None (occurrence: None)
  Receive Date: 20090123
  Receipt Date: 20090113
  Transmission Date: 20090719
  Serious: Yes (Other)
  Sender: FDA-Public Use
  Company Number: GB-PFIZER INC-2008098183

PATIENT

DRUGS (3)
  1. BENDROFLUAZIDE [Suspect]
     Dates: start: 20030201
  2. CARDURA [Suspect]
     Indication: BLOOD PRESSURE
     Dosage: 8 MG, 1X/DAY
     Route: 048
     Dates: start: 20031205
  3. ADALAT [Suspect]
     Dosage: 30 MG, 1X/DAY
     Dates: start: 20021101

REACTIONS (2)
  - BLOOD PRESSURE FLUCTUATION [None]
  - BLOOD PRESSURE INCREASED [None]
